FAERS Safety Report 21707925 (Version 1)
Quarter: 2022Q4

REPORT INFORMATION
  Report Type: Report from Study
  Country: US (occurrence: US)
  Receive Date: 20221209
  Receipt Date: 20221209
  Transmission Date: 20230113
  Serious: No
  Sender: FDA-Public Use
  Company Number: US-ABBVIE-4193263

PATIENT
  Sex: Female

DRUGS (5)
  1. HUMIRA [Suspect]
     Active Substance: ADALIMUMAB
     Indication: Juvenile idiopathic arthritis
     Route: 058
  2. METHOTREXATE [Concomitant]
     Active Substance: METHOTREXATE
     Indication: Product used for unknown indication
  3. FOLIC ACID POW [Concomitant]
     Indication: Product used for unknown indication
  4. NAPROXEN POW [Concomitant]
     Indication: Product used for unknown indication
  5. VITAMIN D TAB 25 MCG 1000 [Concomitant]
     Indication: Product used for unknown indication
     Dosage: 25 MCG (1000)

REACTIONS (2)
  - Hypophagia [Not Recovered/Not Resolved]
  - Abdominal distension [Not Recovered/Not Resolved]
